FAERS Safety Report 7209075-8 (Version None)
Quarter: 2010Q4

REPORT INFORMATION
  Report Type: 
  Country: None (occurrence: None)
  Receive Date: 20101222
  Receipt Date: 20101115
  Transmission Date: 20110411
  Serious: Yes (Other)
  Sender: FDA-Public Use
  Company Number: 2010MA005172

PATIENT
  Age: 56 Year
  Sex: Male

DRUGS (3)
  1. LORAZEPAM [Suspect]
     Indication: PRODUCT USED FOR UNKNOWN INDICATION
     Dosage: ; 1X; PO
     Route: 048
     Dates: start: 20100101
  2. ZOPICLONE (ZOPICLONE) [Suspect]
     Indication: PRODUCT USED FOR UNKNOWN INDICATION
     Dosage: ; 1X; PO
     Route: 048
     Dates: start: 20100101
  3. REQUIP XL [Suspect]
     Indication: PARKINSON'S DISEASE
     Dosage: 6 MG; QD; PO
     Route: 048
     Dates: start: 20100101

REACTIONS (4)
  - DIVORCED [None]
  - MULTIPLE DRUG OVERDOSE INTENTIONAL [None]
  - SUICIDE ATTEMPT [None]
  - TEARFULNESS [None]
